FAERS Safety Report 6812910-6 (Version None)
Quarter: 2010Q3

REPORT INFORMATION
  Report Type: 
  Country: None (occurrence: None)
  Receive Date: 20100701
  Receipt Date: 20100625
  Transmission Date: 20110219
  Serious: Yes (Life-Threatening, Hospitalization, Other)
  Sender: FDA-Public Use
  Company Number: US-BRISTOL-MYERS SQUIBB COMPANY-15109002

PATIENT
  Age: 13 Year
  Sex: Female
  Weight: 29 kg

DRUGS (35)
  1. DASATINIB [Suspect]
     Indication: BONE SARCOMA
     Dosage: INTERRUPTED 01DEC08; CONTINUED AT 25 MG/M2 BID 12DEC TO 13DEC08,1.5MG,0.5MG,2.0MG,3.5MG PRN.
     Dates: start: 20081126
  2. IFOSFAMIDE [Suspect]
     Indication: BONE SARCOMA
     Route: 042
     Dates: start: 20081122, end: 20081126
  3. CARBOPLATIN [Suspect]
     Indication: BONE SARCOMA
     Route: 042
     Dates: start: 20081121, end: 20081122
  4. ETOPOSIDE [Suspect]
     Indication: BONE SARCOMA
     Route: 042
     Dates: start: 20081122, end: 20081126
  5. NEUPOGEN [Concomitant]
     Dates: start: 20081126, end: 20081207
  6. TYLENOL [Concomitant]
     Route: 048
  7. BENADRYL [Concomitant]
     Indication: PREMEDICATION
     Route: 042
  8. BACTRIM [Concomitant]
     Dosage: F/S/S
     Route: 048
  9. HYDROMORPHONE [Concomitant]
     Dosage: DOSAGE:/HR.
     Route: 042
  10. DOPAMINE HCL [Concomitant]
     Route: 042
  11. DILAUDID [Concomitant]
     Route: 042
  12. ACETAMINOPHEN [Concomitant]
     Indication: PREMEDICATION
     Dosage: DOSAGE:/4HRS.
     Route: 048
  13. DIPHENHYDRAMINE [Concomitant]
     Route: 042
  14. BACTRIM [Concomitant]
     Route: 042
  15. ZOFRAN [Concomitant]
     Dosage: DOSAGE:/4HR.
     Route: 042
  16. BIOTENE MOUTHWASH [Concomitant]
     Dosage: 1 DF:474ML/ 30ML SW/SP PER 4HRS.
  17. NYSTATIN [Concomitant]
  18. PEPCID [Concomitant]
     Route: 042
  19. LASIX [Concomitant]
     Route: 042
  20. ATOVAQUONE [Concomitant]
     Route: 048
  21. XOPENEX [Concomitant]
     Dosage: DOSAGE:HHN THREE/DAY PRN.
  22. GUAIFENESIN [Concomitant]
     Route: 048
  23. LIDOCAINE [Concomitant]
     Dosage: 1 DF:4%SOLN 3ML MUCOUS MEMB Q4HR PRN
  24. GM-CSF [Concomitant]
     Route: 042
  25. LEVOFLOXACIN [Concomitant]
     Route: 042
  26. VANCOMYCIN [Concomitant]
  27. ACYCLOVIR [Concomitant]
     Route: 042
  28. MICAFUNGIN SODIUM [Concomitant]
     Route: 042
  29. AZITHROMYCIN [Concomitant]
     Route: 042
  30. VORICONAZOLE [Concomitant]
     Route: 042
  31. ACTIGALL [Concomitant]
     Route: 048
  32. ALBUMIN (HUMAN) [Concomitant]
  33. SODIUM BICARBONATE [Concomitant]
     Route: 042
  34. MAGNESIUM SULFATE [Concomitant]
     Route: 042
  35. SODIUM PHOSPHATE [Concomitant]
     Dosage: 1 DF:10MMOL.
     Route: 042

REACTIONS (10)
  - FLUID OVERLOAD [None]
  - GASTRITIS [None]
  - HERPES SIMPLEX [None]
  - NEUROTOXICITY [None]
  - PERICARDIAL HAEMORRHAGE [None]
  - PNEUMONIA [None]
  - RENAL IMPAIRMENT [None]
  - RESPIRATORY DISTRESS [None]
  - TREMOR [None]
  - UPPER GASTROINTESTINAL HAEMORRHAGE [None]
